FAERS Safety Report 11903312 (Version 2)
Quarter: 2016Q1

REPORT INFORMATION
  Report Type: Report from Study
  Country: BR (occurrence: BR)
  Receive Date: 20160110
  Receipt Date: 20160128
  Transmission Date: 20160526
  Serious: Yes (Hospitalization, Other)
  Sender: FDA-Public Use
  Company Number: PHHY2016BR000717

PATIENT
  Age: 52 Year
  Sex: Male
  Weight: 94.4 kg

DRUGS (2)
  1. DIOVAN [Suspect]
     Active Substance: VALSARTAN
     Indication: HYPERTENSION
     Dosage: 160 MG, QD
     Route: 048
  2. DIOVAN [Suspect]
     Active Substance: VALSARTAN
     Dosage: 160 MG, QD
     Route: 048

REACTIONS (10)
  - Malaise [Recovering/Resolving]
  - Decreased appetite [Recovering/Resolving]
  - Blood pressure decreased [Recovering/Resolving]
  - Pallor [Recovering/Resolving]
  - Blood cholesterol increased [Recovering/Resolving]
  - Thrombosis [Recovering/Resolving]
  - Asthenia [Recovering/Resolving]
  - Gastritis [Recovering/Resolving]
  - Blood triglycerides increased [Recovering/Resolving]
  - Anaemia [Unknown]

NARRATIVE: CASE EVENT DATE: 201512
